FAERS Safety Report 22266954 (Version 3)
Quarter: 2023Q2

REPORT INFORMATION
  Report Type: Spontaneous
  Country: PT (occurrence: PT)
  Receive Date: 20230428
  Receipt Date: 20230526
  Transmission Date: 20230721
  Serious: Yes (Other)
  Sender: FDA-Public Use
  Company Number: PT-Hikma Pharmaceuticals-PT-H14001-23-01012

PATIENT
  Age: 56 Year
  Sex: Male

DRUGS (20)
  1. GEMCITABINE HYDROCHLORIDE [Suspect]
     Active Substance: GEMCITABINE HYDROCHLORIDE
     Indication: Metastases to bone
     Dosage: 1000 MG/M2 (EVERY TWO WEEKS) (GEMOX)
     Dates: start: 201607
  2. GEMCITABINE HYDROCHLORIDE [Suspect]
     Active Substance: GEMCITABINE HYDROCHLORIDE
     Indication: Follicular thyroid cancer
     Dosage: EVERY 3 WEEKS
     Dates: end: 201701
  3. GEMCITABINE HYDROCHLORIDE [Suspect]
     Active Substance: GEMCITABINE HYDROCHLORIDE
     Indication: Metastases to the mediastinum
     Dosage: UNK, CYCLIC (EACH CYCLE BEING ADMINISTERED EVERY 2 TO 3 WEEKS)
     Dates: start: 201806
  4. GEMCITABINE HYDROCHLORIDE [Suspect]
     Active Substance: GEMCITABINE HYDROCHLORIDE
     Indication: Thyroid cancer metastatic
  5. GEMCITABINE HYDROCHLORIDE [Suspect]
     Active Substance: GEMCITABINE HYDROCHLORIDE
     Indication: Metastases to lung
  6. GEMCITABINE HYDROCHLORIDE [Suspect]
     Active Substance: GEMCITABINE HYDROCHLORIDE
     Indication: Metastases to lymph nodes
  7. OXALIPLATIN [Suspect]
     Active Substance: OXALIPLATIN
     Indication: Metastases to lymph nodes
     Dosage: 100 MG/M2 (EVERY TWO WEEKS) (GEMOX)
     Dates: start: 201607, end: 2016
  8. OXALIPLATIN [Suspect]
     Active Substance: OXALIPLATIN
     Indication: Metastases to bone
     Dosage: REDUCED BY 20%, EVERY 3 WEEKS
     Dates: end: 201701
  9. OXALIPLATIN [Suspect]
     Active Substance: OXALIPLATIN
     Indication: Follicular thyroid cancer
     Dosage: UNK, CYCLIC (EACH CYCLE BEING ADMINISTERED EVERY 2 TO 3 WEEKS)
     Dates: start: 201806
  10. OXALIPLATIN [Suspect]
     Active Substance: OXALIPLATIN
     Indication: Thyroid cancer metastatic
  11. OXALIPLATIN [Suspect]
     Active Substance: OXALIPLATIN
     Indication: Metastases to the mediastinum
  12. OXALIPLATIN [Suspect]
     Active Substance: OXALIPLATIN
     Indication: Metastases to lung
  13. OXYGEN [Concomitant]
     Active Substance: OXYGEN
     Dosage: UNK
     Dates: start: 2016, end: 2017
  14. SUNITINIB [Concomitant]
     Active Substance: SUNITINIB
     Indication: Metastases to lymph nodes
     Dosage: 37.5 MG, 1X/DAY (LOWER DOSE)
     Dates: start: 2015
  15. SUNITINIB [Concomitant]
     Active Substance: SUNITINIB
     Indication: Follicular thyroid cancer
  16. SUNITINIB [Concomitant]
     Active Substance: SUNITINIB
     Indication: Metastases to bone
  17. SUNITINIB [Concomitant]
     Active Substance: SUNITINIB
     Indication: Thyroid cancer metastatic
  18. SUNITINIB [Concomitant]
     Active Substance: SUNITINIB
     Indication: Metastases to the mediastinum
  19. SUNITINIB [Concomitant]
     Active Substance: SUNITINIB
     Indication: Metastases to lung
  20. HYDROCHLOROTHIAZIDE\LOSARTAN [Concomitant]
     Active Substance: HYDROCHLOROTHIAZIDE\LOSARTAN
     Indication: Hypertension
     Dosage: UNK
     Dates: start: 2014

REACTIONS (4)
  - Peripheral sensory neuropathy [Unknown]
  - Haematotoxicity [Unknown]
  - Off label use [Unknown]
  - Drug effective for unapproved indication [Unknown]

NARRATIVE: CASE EVENT DATE: 20160101
